FAERS Safety Report 6372080-8 (Version None)
Quarter: 2009Q3

REPORT INFORMATION
  Report Type: 
  Country: None (occurrence: None)
  Receive Date: 20090918
  Receipt Date: 20090904
  Transmission Date: 20100115
  Serious: Yes (Hospitalization, Other)
  Sender: FDA-Public Use
  Company Number: ENT 2009-0086

PATIENT
  Age: 75 Year
  Sex: Male

DRUGS (5)
  1. COMTAN [Suspect]
     Indication: PARKINSON'S DISEASE
     Dosage: 300 MG; 200 MG; 400 MG; 200 MG
     Route: 048
     Dates: start: 20090213, end: 20090317
  2. COMTAN [Suspect]
     Indication: PARKINSON'S DISEASE
     Dosage: 300 MG; 200 MG; 400 MG; 200 MG
     Route: 048
     Dates: start: 20090109
  3. COMTAN [Suspect]
     Indication: PARKINSON'S DISEASE
     Dosage: 300 MG; 200 MG; 400 MG; 200 MG
     Route: 048
     Dates: start: 20090116
  4. MADOPAR [Concomitant]
  5. SELEGILINE HCL [Concomitant]
     Indication: DRUG EFFECT DECREASED

REACTIONS (11)
  - ABDOMINAL PAIN [None]
  - APATHY [None]
  - BLOOD CREATININE DECREASED [None]
  - C-REACTIVE PROTEIN INCREASED [None]
  - DECREASED ACTIVITY [None]
  - DELUSION [None]
  - DIARRHOEA [None]
  - HAEMATOCRIT DECREASED [None]
  - HAEMOGLOBIN DECREASED [None]
  - HYPOKALAEMIA [None]
  - RED BLOOD CELL COUNT DECREASED [None]
